FAERS Safety Report 14926836 (Version 1)
Quarter: 2018Q2

REPORT INFORMATION
  Report Type: Spontaneous
  Country: FR (occurrence: FR)
  Receive Date: 20180523
  Receipt Date: 20180523
  Transmission Date: 20180711
  Serious: Yes (Other)
  Sender: FDA-Public Use
  Company Number: FR-MERCK KGAA-2048274

PATIENT
  Age: 61 Year
  Sex: Female

DRUGS (1)
  1. NOVOTHYROX [Suspect]
     Active Substance: LEVOTHYROXINE SODIUM
     Indication: PRODUCT USED FOR UNKNOWN INDICATION

REACTIONS (18)
  - Tendonitis [None]
  - Dyspnoea [Recovered/Resolved]
  - Cough [Recovered/Resolved]
  - Pain in extremity [Recovered/Resolved]
  - Weight increased [Recovered/Resolved]
  - Inflammation [Recovered/Resolved]
  - Abdominal pain upper [Recovered/Resolved]
  - Loss of libido [Recovered/Resolved]
  - Gastric disorder [Recovered/Resolved]
  - Asocial behaviour [Recovered/Resolved]
  - Hyperhidrosis [Recovered/Resolved]
  - Respiratory distress [Recovered/Resolved]
  - General physical health deterioration [Recovered/Resolved]
  - Palpitations [Recovered/Resolved]
  - Alopecia [Recovered/Resolved]
  - Decreased appetite [Recovered/Resolved]
  - Fatigue [Recovered/Resolved]
  - Irritability [Recovered/Resolved]

NARRATIVE: CASE EVENT DATE: 2017
